FAERS Safety Report 4412863-4 (Version None)
Quarter: 2004Q3

REPORT INFORMATION
  Report Type: 
  Country: None (occurrence: None)
  Receive Date: 20040727
  Receipt Date: 20040714
  Transmission Date: 20050211
  Serious: Yes (Hospitalization)
  Sender: FDA-Public Use
  Company Number: USA-2002-004274

PATIENT
  Age: 54 Year
  Sex: Female
  Weight: 27.6694 kg

DRUGS (11)
  1. BETASERON [Suspect]
     Indication: MULTIPLE SCLEROSIS
     Dosage: 8 MIU EVERY 2D SUBCUTANEOUS
     Route: 058
     Dates: start: 19941219
  2. PROCARIN (HISTAMINE) [Concomitant]
  3. SYMMETREL [Concomitant]
  4. DITROPHAN XL (OXYBUTYNIN HYDROCHLORIDE) [Concomitant]
  5. BACLOFEN [Concomitant]
  6. AVALIDE (IRBESARTAN) [Concomitant]
  7. MULTIVITAMINS (RETINOL, PANTHENOL) [Concomitant]
  8. VITAMIN E [Concomitant]
  9. VITAMIN C [Concomitant]
  10. CIPRO [Concomitant]
  11. MENT AC (METHYL NORTESTOSTERONE ACETATE) [Concomitant]

REACTIONS (9)
  - BREAST CANCER FEMALE [None]
  - BREAST CANCER IN SITU [None]
  - CONDITION AGGRAVATED [None]
  - DISEASE RECURRENCE [None]
  - FALL [None]
  - MULTIPLE SCLEROSIS [None]
  - NUCLEAR MAGNETIC RESONANCE IMAGING BRAIN ABNORMAL [None]
  - STRESS SYMPTOMS [None]
  - URINARY TRACT INFECTION [None]
